FAERS Safety Report 15234984 (Version 1)
Quarter: 2018Q3

REPORT INFORMATION
  Report Type: Spontaneous
  Country: US (occurrence: US)
  Receive Date: 20180803
  Receipt Date: 20180803
  Transmission Date: 20181010
  Serious: Yes (Other)
  Sender: FDA-Public Use
  Company Number: US-ASTELLAS-2018US029110

PATIENT
  Sex: Male

DRUGS (2)
  1. XTANDI [Suspect]
     Active Substance: ENZALUTAMIDE
     Indication: HORMONE-REFRACTORY PROSTATE CANCER
     Route: 065
     Dates: start: 201802
  2. XTANDI [Suspect]
     Active Substance: ENZALUTAMIDE
     Route: 048
     Dates: start: 201806

REACTIONS (13)
  - Hypertension [Unknown]
  - Dysphagia [Unknown]
  - Chest discomfort [Recovering/Resolving]
  - Dizziness [Unknown]
  - Amnesia [Recovering/Resolving]
  - Dyspnoea [Recovering/Resolving]
  - Speech disorder [Unknown]
  - Throat tightness [Recovering/Resolving]
  - Constipation [Recovering/Resolving]
  - Arthralgia [Recovering/Resolving]
  - Wheezing [Unknown]
  - Hot flush [Recovering/Resolving]
  - Visual impairment [Recovering/Resolving]

NARRATIVE: CASE EVENT DATE: 201806
